FAERS Safety Report 6231037-8 (Version None)
Quarter: 2009Q2

REPORT INFORMATION
  Report Type: 
  Country: None (occurrence: None)
  Receive Date: 20090616
  Receipt Date: 20090501
  Transmission Date: 20091009
  Serious: Yes (Other)
  Sender: FDA-Public Use
  Company Number: PHHY2009GB17738

PATIENT
  Age: 34 Year
  Sex: Female
  Weight: 50.4 kg

DRUGS (1)
  1. SYNTOMETRINE [Suspect]
     Indication: RETAINED PLACENTA OR MEMBRANES
     Dosage: UNK
     Route: 030
     Dates: start: 20090408

REACTIONS (4)
  - DRUG INEFFECTIVE [None]
  - EVACUATION OF RETAINED PRODUCTS OF CONCEPTION [None]
  - HAEMORRHAGE [None]
  - PRODUCT QUALITY ISSUE [None]
